FAERS Safety Report 8316391-5 (Version None)
Quarter: 2012Q2

REPORT INFORMATION
  Report Type: 
  Country: None (occurrence: None)
  Receive Date: 20120427
  Receipt Date: 20120416
  Transmission Date: 20120825
  Serious: Yes (Other)
  Sender: FDA-Public Use
  Company Number: BR-AMGEN-BRASP2012025391

PATIENT
  Age: 45 Year
  Sex: Female
  Weight: 82 kg

DRUGS (4)
  1. ATENOLOL [Concomitant]
     Dosage: UNK
  2. CAPTOPRIL [Concomitant]
     Dosage: UNK
  3. LOSARTAN POTASSIUM [Concomitant]
     Dosage: UNK
  4. ENBREL [Suspect]
     Indication: RHEUMATOID ARTHRITIS
     Dosage: 25 MG, 2X/WEEK
     Route: 058
     Dates: start: 20101201, end: 20110701

REACTIONS (3)
  - FATIGUE [None]
  - PAIN IN EXTREMITY [None]
  - DIABETES MELLITUS [None]
